FAERS Safety Report 8841191 (Version 1)
Quarter: 2012Q4

REPORT INFORMATION
  Report Type: 
  Country: FR (occurrence: FR)
  Receive Date: 20121015
  Receipt Date: 20121015
  Transmission Date: 20130627
  Serious: Yes (Other)
  Sender: FDA-Public Use
  Company Number: FR-ROCHE-1144461

PATIENT
  Sex: Male

DRUGS (2)
  1. ZELBORAF [Suspect]
     Indication: METASTATIC MALIGNANT MELANOMA
     Route: 048
     Dates: start: 201203
  2. KEPPRA [Concomitant]
     Indication: EPILEPSY
     Route: 048

REACTIONS (5)
  - Renal failure [Unknown]
  - Paraesthesia [Recovered/Resolved]
  - Photosensitivity reaction [Recovered/Resolved]
  - Palmar-plantar erythrodysaesthesia syndrome [Not Recovered/Not Resolved]
  - Keratoacanthoma [Recovered/Resolved with Sequelae]
